FAERS Safety Report 6141049-0 (Version None)
Quarter: 2009Q2

REPORT INFORMATION
  Report Type: 
  Country: None (occurrence: None)
  Receive Date: 20090402
  Receipt Date: 20090324
  Transmission Date: 20091009
  Serious: Yes (Hospitalization)
  Sender: FDA-Public Use
  Company Number: JP-BRISTOL-MYERS SQUIBB COMPANY-14537542

PATIENT
  Age: 73 Year
  Sex: Female
  Weight: 51 kg

DRUGS (4)
  1. ERBITUX [Suspect]
     Indication: COLON CANCER
     Dosage: 1ST INF; 400MG/M2 ON 27JAN09 2NF INF; 250MG/M2 ON 03FEB09 3RD INF; 250MG/M2 ON 10FEB09
     Route: 042
     Dates: start: 20090127, end: 20090127
  2. IRINOTECAN HCL [Suspect]
     Indication: COLON CANCER
     Dosage: ALSO RECD ON 10FEB09 (140 MG/BODY)
     Route: 042
     Dates: start: 20090127
  3. POLARAMINE [Concomitant]
     Indication: PREMEDICATION
     Route: 042
     Dates: start: 20090127
  4. DECADRON [Concomitant]
     Indication: PREMEDICATION
     Route: 042
     Dates: start: 20090127

REACTIONS (1)
  - ASTHMA [None]
